FAERS Safety Report 17110353 (Version 1)
Quarter: 2019Q4

REPORT INFORMATION
  Report Type: Spontaneous
  Country: CN (occurrence: CN)
  Receive Date: 20191204
  Receipt Date: 20191204
  Transmission Date: 20200122
  Serious: Yes (Hospitalization, Other)
  Sender: FDA-Public Use
  Company Number: CN-PFIZER INC-2019520413

PATIENT
  Age: 59 Year
  Sex: Male
  Weight: 66 kg

DRUGS (3)
  1. FLUOROURACIL. [Concomitant]
     Active Substance: FLUOROURACIL
     Indication: RECTAL CANCER
     Dosage: UNK
     Dates: start: 20191109
  2. FOLINIC ACID [Concomitant]
     Active Substance: LEUCOVORIN
     Indication: RECTAL CANCER
     Dosage: UNK
     Dates: start: 20191109
  3. CAMPTO [Suspect]
     Active Substance: IRINOTECAN
     Indication: RECTAL CANCER
     Dosage: 200 MG, 1X/DAY
     Route: 041
     Dates: start: 20191109, end: 20191109

REACTIONS (2)
  - Hyperbilirubinaemia [Recovered/Resolved]
  - Neoplasm progression [Unknown]

NARRATIVE: CASE EVENT DATE: 2019
